FAERS Safety Report 9376629 (Version 1)
Quarter: 2013Q3

REPORT INFORMATION
  Report Type: Spontaneous
  Country: GB (occurrence: GB)
  Receive Date: 20130701
  Receipt Date: 20130701
  Transmission Date: 20140515
  Serious: Yes (Other)
  Sender: FDA-Public Use
  Company Number: GB-ACCORD-018219

PATIENT
  Age: 71 Year
  Sex: Male
  Weight: 94.8 kg

DRUGS (8)
  1. CO-CODAMOL [Concomitant]
     Dosage: 30/500 AS REQUIRED
  2. OMEPRAZOLE [Concomitant]
     Indication: GASTROINTESTINAL DISORDER
     Route: 048
  3. NICORANDIL [Concomitant]
  4. CLOPIDOGREL [Suspect]
     Indication: CEREBROVASCULAR ACCIDENT PROPHYLAXIS
     Route: 048
     Dates: start: 201212, end: 20130602
  5. BISOPROLOL [Concomitant]
     Route: 048
  6. RAMIPRIL [Concomitant]
     Indication: HYPERTENSION
     Route: 048
  7. PRAVASTATIN [Concomitant]
  8. GLICLAZIDE [Concomitant]
     Indication: DIABETES MELLITUS
     Route: 048

REACTIONS (2)
  - Hyperglycaemia [Recovering/Resolving]
  - Diabetes mellitus inadequate control [Recovering/Resolving]
